FAERS Safety Report 8544735-8 (Version None)
Quarter: 2012Q3

REPORT INFORMATION
  Report Type: 
  Country: None (occurrence: None)
  Receive Date: 20120727
  Receipt Date: 20120723
  Transmission Date: 20120928
  Serious: Yes (Life-Threatening, Hospitalization)
  Sender: FDA-Public Use
  Company Number: BR-ASTRAZENECA-2012SE51887

PATIENT
  Age: 51 Year
  Sex: Male
  Weight: 78 kg

DRUGS (9)
  1. LANTUS [Concomitant]
     Route: 058
  2. CRESTOR [Suspect]
     Indication: DYSLIPIDAEMIA
     Route: 048
     Dates: end: 20110301
  3. PROPAFENONE HCL [Concomitant]
     Route: 048
  4. METFORMIN HCL [Concomitant]
     Route: 048
  5. PANTOPRAZOLE [Concomitant]
     Route: 048
  6. CRESTOR [Suspect]
     Route: 048
     Dates: start: 20120301, end: 20120701
  7. CARDIZEM [Concomitant]
     Route: 048
  8. NORVASC [Concomitant]
     Route: 048
  9. CRESTOR [Suspect]
     Route: 048
     Dates: start: 20120701

REACTIONS (6)
  - MALNUTRITION [None]
  - BLOOD CHOLESTEROL INCREASED [None]
  - HYPERTENSION [None]
  - MYOCARDIAL INFARCTION [None]
  - BLOOD TRIGLYCERIDES INCREASED [None]
  - CARDIOGENIC SHOCK [None]
